FAERS Safety Report 4454928-7 (Version None)
Quarter: 2004Q3

REPORT INFORMATION
  Report Type: 
  Country: None (occurrence: None)
  Receive Date: 20040921
  Receipt Date: 19990301
  Transmission Date: 20050211
  Serious: Yes (Other)
  Sender: FDA-Public Use
  Company Number: AU-ROCHE-215867

PATIENT
  Age: 17 Year
  Sex: Female
  Weight: 49 kg

DRUGS (1)
  1. ROACCUTANE [Suspect]
     Indication: ACNE
     Route: 065
     Dates: start: 19960715, end: 19970415

REACTIONS (8)
  - ABNORMAL BEHAVIOUR [None]
  - AFFECT LABILITY [None]
  - DEPRESSION [None]
  - DRUG ABUSER [None]
  - HIV TEST POSITIVE [None]
  - NEUROSIS [None]
  - SUICIDAL IDEATION [None]
  - SUICIDE ATTEMPT [None]
